FAERS Safety Report 8599115-6 (Version None)
Quarter: 2012Q3

REPORT INFORMATION
  Report Type: 
  Country: None (occurrence: None)
  Receive Date: 20120816
  Receipt Date: 20120806
  Transmission Date: 20120928
  Serious: Yes (Other)
  Sender: FDA-Public Use
  Company Number: CHPA2012US016093

PATIENT
  Age: 51 Year
  Sex: Female

DRUGS (1)
  1. EXCEDRIN (MIGRAINE) [Suspect]
     Dosage: 1 DF, UNK
     Route: 048

REACTIONS (6)
  - PAIN [None]
  - PANCREATITIS ACUTE [None]
  - UNDERDOSE [None]
  - HAEMORRHAGE [None]
  - CHEST PAIN [None]
  - SWELLING [None]
